FAERS Safety Report 6907298-6 (Version None)
Quarter: 2010Q3

REPORT INFORMATION
  Report Type: 
  Country: None (occurrence: None)
  Receive Date: 20100730
  Receipt Date: 20100721
  Transmission Date: 20110219
  Serious: Yes (Hospitalization, Other)
  Sender: FDA-Public Use
  Company Number: ACO_01021_2010

PATIENT
  Sex: Female
  Weight: 43.0917 kg

DRUGS (7)
  1. AMPYRA [Suspect]
     Indication: MULTIPLE SCLEROSIS
     Dosage: 10MG BID ORAL
     Route: 048
     Dates: start: 20100527
  2. AMITRIPTYLINE (40MG, 45MG) [Suspect]
     Indication: PAIN
  3. ASCORBIC ACID [Concomitant]
  4. HIPREX [Concomitant]
  5. STOOL SOFTNER [Concomitant]
  6. ACETAMINOPHEN [Concomitant]
  7. COPAXONE [Concomitant]

REACTIONS (2)
  - CONVULSION [None]
  - INSOMNIA [None]
